FAERS Safety Report 21848199 (Version 2)
Quarter: 2023Q1

REPORT INFORMATION
  Report Type: Spontaneous
  Country: US (occurrence: US)
  Receive Date: 20230111
  Receipt Date: 20230222
  Transmission Date: 20230418
  Serious: Yes (Other)
  Sender: FDA-Public Use
  Company Number: US-PFIZER INC-202300006182

PATIENT
  Sex: Female

DRUGS (1)
  1. DEPO-PROVERA [Suspect]
     Active Substance: MEDROXYPROGESTERONE ACETATE
     Dosage: 150 MG
     Dates: start: 20230105

REACTIONS (3)
  - Skin laceration [Unknown]
  - Haemorrhage [Unknown]
  - Device breakage [Unknown]

NARRATIVE: CASE EVENT DATE: 20230105
